FAERS Safety Report 15488726 (Version 1)
Quarter: 2018Q4

REPORT INFORMATION
  Report Type: Spontaneous
  Country: US (occurrence: US)
  Receive Date: 20181011
  Receipt Date: 20181011
  Transmission Date: 20190205
  Serious: No
  Sender: FDA-Public Use
  Company Number: US-PFIZER INC-2018404617

PATIENT
  Age: 7 Year
  Sex: Female

DRUGS (1)
  1. GENOTROPIN [Suspect]
     Active Substance: SOMATROPIN
     Dosage: 0.9 MG, DAILY

REACTIONS (8)
  - Blood albumin increased [Unknown]
  - Aspartate aminotransferase increased [Unknown]
  - Blood parathyroid hormone decreased [Unknown]
  - Blood thyroid stimulating hormone increased [Unknown]
  - Blood creatinine decreased [Unknown]
  - Blood glucose decreased [Unknown]
  - Vitamin D decreased [Unknown]
  - Platelet count increased [Unknown]
